FAERS Safety Report 20797719 (Version 1)
Quarter: 2022Q2

REPORT INFORMATION
  Report Type: Spontaneous
  Country: US (occurrence: None)
  Receive Date: 20220506
  Receipt Date: 20220506
  Transmission Date: 20220721
  Serious: Yes (Disabling, Other)
  Sender: FDA-Public Use
  Company Number: 2018SF25811

PATIENT
  Age: 21121 Day
  Sex: Male

DRUGS (52)
  1. OMEPRAZOLE [Suspect]
     Active Substance: OMEPRAZOLE
     Indication: Dyspepsia
     Dosage: GENERIC20.0MG UNKNOWN
     Route: 065
     Dates: start: 2002, end: 2013
  2. PRILOSEC OTC [Suspect]
     Active Substance: OMEPRAZOLE MAGNESIUM
     Indication: Dyspepsia
     Dosage: 20.0MG UNKNOWN
     Route: 048
  3. ACIPHEX [Suspect]
     Active Substance: RABEPRAZOLE SODIUM
     Indication: Dyspepsia
     Route: 065
  4. HYDROCHLOROTHIAZIDE [Concomitant]
     Active Substance: HYDROCHLOROTHIAZIDE
  5. IMIPRAMIDE [Concomitant]
  6. LORAZEPAM [Concomitant]
     Active Substance: LORAZEPAM
  7. GABAPENTIN [Concomitant]
     Active Substance: GABAPENTIN
  8. ULORIC [Concomitant]
     Active Substance: FEBUXOSTAT
  9. CYCLOBENZAPRINE [Concomitant]
     Active Substance: CYCLOBENZAPRINE
  10. OXYCODONE AND ACETAMINOPHEN [Concomitant]
     Active Substance: ACETAMINOPHEN\OXYCODONE HYDROCHLORIDE
  11. SERTRALINE [Concomitant]
     Active Substance: SERTRALINE HYDROCHLORIDE
  12. TRIAMTERENE/BENZTHIAZIDE [Concomitant]
  13. LYRICA [Concomitant]
     Active Substance: PREGABALIN
  14. ZOLPIDEM [Concomitant]
     Active Substance: ZOLPIDEM TARTRATE
  15. OXYCODONE HYDROCHLORIDE [Concomitant]
     Active Substance: OXYCODONE HYDROCHLORIDE
  16. ANUCORT [Concomitant]
  17. ESCIN/LEVOTHYROXINE [Concomitant]
  18. METHOCARBAMOL [Concomitant]
     Active Substance: METHOCARBAMOL
  19. METHYLPREDNISOLONE [Concomitant]
     Active Substance: METHYLPREDNISOLONE
  20. NUCYNTA [Concomitant]
     Active Substance: TAPENTADOL HYDROCHLORIDE
  21. TOPIRAMATE [Concomitant]
     Active Substance: TOPIRAMATE
  22. ACETAMINOPHEN\HYDROCODONE BITARTRATE [Concomitant]
     Active Substance: ACETAMINOPHEN\HYDROCODONE BITARTRATE
  23. INDOMETHACIN [Concomitant]
     Active Substance: INDOMETHACIN
  24. DEXAMETHASONE [Concomitant]
     Active Substance: DEXAMETHASONE
  25. TEMAZEPAM [Concomitant]
     Active Substance: TEMAZEPAM
  26. PREDNISONE [Concomitant]
     Active Substance: PREDNISONE
  27. COLCRYS [Concomitant]
     Active Substance: COLCHICINE
  28. VITAMIN D [Concomitant]
     Active Substance: VITAMIN D NOS
  29. AMITRIPTYLINE [Concomitant]
     Active Substance: AMITRIPTYLINE
  30. POTASSIUM CHLORIDE [Concomitant]
     Active Substance: POTASSIUM CHLORIDE
  31. ALLOPURINOL [Concomitant]
     Active Substance: ALLOPURINOL
  32. ZONISAMIDE [Concomitant]
     Active Substance: ZONISAMIDE
  33. AZITHROMYCIN [Concomitant]
     Active Substance: AZITHROMYCIN
  34. PROAIR HFA [Concomitant]
     Active Substance: ALBUTEROL SULFATE
  35. DIAZEPAM [Concomitant]
     Active Substance: DIAZEPAM
  36. FENOFIBRATE [Concomitant]
     Active Substance: FENOFIBRATE
  37. HYDROCHLOROTHIAZIDE\LISINOPRIL [Concomitant]
     Active Substance: HYDROCHLOROTHIAZIDE\LISINOPRIL
  38. SIMVASTATIN [Concomitant]
     Active Substance: SIMVASTATIN
  39. POLYETHYLENE GLYCOL [Concomitant]
     Active Substance: POLYETHYLENE GLYCOL
  40. DILTIAZEM [Concomitant]
     Active Substance: DILTIAZEM
  41. MOMETASONE [Concomitant]
     Active Substance: MOMETASONE
  42. TRAMASOL [Concomitant]
  43. ANDROGEL [Concomitant]
     Active Substance: TESTOSTERONE
  44. AMOXICILLIN [Concomitant]
     Active Substance: AMOXICILLIN
  45. AMOXICILLIN\CLAVULANATE POTASSIUM [Concomitant]
     Active Substance: AMOXICILLIN\CLAVULANATE POTASSIUM
  46. LEVITRA [Concomitant]
     Active Substance: VARDENAFIL HYDROCHLORIDE
  47. VERAPAMIL [Concomitant]
     Active Substance: VERAPAMIL HYDROCHLORIDE
  48. SILVER SULFADIAZINE [Concomitant]
     Active Substance: SILVER SULFADIAZINE
  49. CELEBREX [Concomitant]
     Active Substance: CELECOXIB
  50. ALTACE [Concomitant]
     Active Substance: RAMIPRIL
  51. FLOVENT [Concomitant]
     Active Substance: FLUTICASONE PROPIONATE
  52. HEPRAIN [Concomitant]

REACTIONS (3)
  - Acute kidney injury [Unknown]
  - Gastrooesophageal reflux disease [Unknown]
  - Renal failure [Not Recovered/Not Resolved]

NARRATIVE: CASE EVENT DATE: 20121107
